FAERS Safety Report 19256183 (Version 2)
Quarter: 2021Q2

REPORT INFORMATION
  Report Type: Report from Study
  Country: US (occurrence: US)
  Receive Date: 20210514
  Receipt Date: 20210520
  Transmission Date: 20210717
  Serious: Yes (Hospitalization)
  Sender: FDA-Public Use
  Company Number: US-CHIESI-2021CHF02259

PATIENT
  Sex: Female
  Weight: 96 kg

DRUGS (1)
  1. DEFERIPRONE [Suspect]
     Active Substance: DEFERIPRONE
     Indication: SICKLE CELL DISEASE
     Dosage: 1000 MILLIGRAM, BID
     Route: 048
     Dates: start: 20201030

REACTIONS (1)
  - Sickle cell anaemia with crisis [Unknown]
